FAERS Safety Report 5413797-9 (Version None)
Quarter: 2007Q3

REPORT INFORMATION
  Report Type: 
  Country: None (occurrence: None)
  Receive Date: 20070814
  Receipt Date: 20070803
  Transmission Date: 20080115
  Serious: Yes (Other)
  Sender: FDA-Public Use
  Company Number: US-AVENTIS-200715657US

PATIENT

DRUGS (2)
  1. LANTUS [Suspect]
     Dosage: DOSE: UNK
  2. RAPID ACTING INSULIN NOS [Concomitant]
     Dosage: DOSE: UNK

REACTIONS (1)
  - RENAL FAILURE CHRONIC [None]
